FAERS Safety Report 6604352-3 (Version None)
Quarter: 2010Q1

REPORT INFORMATION
  Report Type: 
  Country: None (occurrence: None)
  Receive Date: 20100226
  Receipt Date: 20090826
  Transmission Date: 20100710
  Serious: Yes (Other)
  Sender: FDA-Public Use
  Company Number: A0805167A

PATIENT
  Age: 55 Year
  Sex: Male

DRUGS (7)
  1. LAMICTAL CD [Suspect]
     Dosage: 25MG UNKNOWN
     Route: 048
     Dates: start: 20090812, end: 20090822
  2. CELEXA [Concomitant]
  3. HYDROXYZINE [Concomitant]
  4. METFORMIN HYDROCHLORIDE [Concomitant]
  5. INSULIN [Concomitant]
  6. SIMVASTATIN [Concomitant]
  7. LISINOPRIL [Concomitant]

REACTIONS (1)
  - RASH [None]
